FAERS Safety Report 7614591-0 (Version None)
Quarter: 2011Q3

REPORT INFORMATION
  Report Type: 
  Country: None (occurrence: None)
  Receive Date: 20110708
  Receipt Date: 20110622
  Transmission Date: 20111222
  Serious: Yes (Hospitalization, Other)
  Sender: FDA-Public Use
  Company Number: CC-11-054

PATIENT
  Age: 75 Year
  Sex: Male
  Weight: 74.3899 kg

DRUGS (4)
  1. VALPROIC ACID [Suspect]
     Indication: CONVULSION PROPHYLAXIS
     Dosage: 500 MG 3 X DAILY
  2. LORTAB [Concomitant]
  3. TIMOL EYEDROPS [Concomitant]
  4. VALPROIC ACID [Suspect]

REACTIONS (2)
  - ANTICONVULSANT DRUG LEVEL DECREASED [None]
  - CONVULSION [None]
